FAERS Safety Report 25729625 (Version 1)
Quarter: 2025Q3

REPORT INFORMATION
  Report Type: Spontaneous
  Country: US (occurrence: None)
  Receive Date: 20250826
  Receipt Date: 20250826
  Transmission Date: 20251020
  Serious: Yes (Other)
  Sender: FDA-CTU
  Company Number: None

PATIENT
  Age: 89 Year
  Sex: Male

DRUGS (10)
  1. ADEMPAS [Suspect]
     Active Substance: RIOCIGUAT
     Indication: Pulmonary hypertension
     Dosage: FREQUENCY : 3 TIMES A DAY;?
     Route: 048
     Dates: start: 20190912
  2. DABIGATRAN [Concomitant]
     Active Substance: DABIGATRAN
  3. FUROSEMIDE [Concomitant]
     Active Substance: FUROSEMIDE
  4. POTASSIUM CHLORIDE [Concomitant]
     Active Substance: POTASSIUM CHLORIDE
  5. NORCO [Concomitant]
     Active Substance: ACETAMINOPHEN\HYDROCODONE BITARTRATE
  6. peridex mouth wash [Concomitant]
  7. PANTOPRAZOLE [Concomitant]
     Active Substance: PANTOPRAZOLE
  8. MIDODRINE [Concomitant]
     Active Substance: MIDODRINE
  9. ALLOPURINOL [Concomitant]
     Active Substance: ALLOPURINOL
  10. PRADAXA [Suspect]
     Active Substance: DABIGATRAN ETEXILATE MESYLATE

REACTIONS (1)
  - Gingival bleeding [None]

NARRATIVE: CASE EVENT DATE: 20250726
